FAERS Safety Report 9092190 (Version 2)
Quarter: 2013Q3

REPORT INFORMATION
  Report Type: Report from Study
  Country: DK (occurrence: DK)
  Receive Date: 20130201
  Receipt Date: 20130819
  Transmission Date: 20140515
  Serious: Yes (Hospitalization)
  Sender: FDA-Public Use
  Company Number: DK-UCBSA-077063

PATIENT
  Age: 72 Year
  Sex: Female
  Weight: 42.9 kg

DRUGS (9)
  1. LACOSAMIDE [Suspect]
     Indication: EPILEPSY
  2. ENALAPRIL [Concomitant]
     Indication: HYPERTENSION
     Dates: start: 20101013
  3. MAGNESIUM [Concomitant]
     Indication: CONSTIPATION
     Dates: start: 20101014
  4. SIMVASTATIN [Concomitant]
     Indication: BLOOD CHOLESTEROL INCREASED
     Dates: start: 20101117
  5. ASA [Concomitant]
     Indication: PROPHYLAXIS
     Dates: start: 20101105
  6. LAMOTRIGINE [Concomitant]
     Indication: EPILEPSY
     Dates: start: 20101112
  7. ONDANSETRON [Concomitant]
     Indication: NAUSEA
     Dates: start: 20120713
  8. IRON [Concomitant]
     Indication: ANAEMIA
     Dates: start: 20120713
  9. CODEINE [Concomitant]
     Indication: PAIN
     Dates: start: 20120716

REACTIONS (1)
  - Urinary tract infection [Recovered/Resolved]
